FAERS Safety Report 5051765-X (Version None)
Quarter: 2006Q3

REPORT INFORMATION
  Report Type: 
  Country: None (occurrence: None)
  Receive Date: 20060711
  Receipt Date: 20060626
  Transmission Date: 20061208
  Serious: Yes (Other)
  Sender: FDA-Public Use
  Company Number: 2006S1005839

PATIENT
  Age: 78 Year
  Sex: Male
  Weight: 75.7507 kg

DRUGS (8)
  1. EXTENDED PHENYTOIN SODIUM [Suspect]
     Indication: CONVULSION PROPHYLAXIS
     Dosage: 300 MG; QHS; PO
     Route: 048
     Dates: start: 20060516, end: 20060622
  2. EXTENDED PHENYTOIN SODIUM [Suspect]
     Indication: CONVULSION PROPHYLAXIS
     Dosage: 300 MG; QHS; PO
     Route: 048
     Dates: start: 20060624, end: 20060625
  3. AVODART [Concomitant]
  4. FOSAMAX ONCE WEEKLY [Concomitant]
  5. ATENOL [Concomitant]
  6. UROCEF [Concomitant]
  7. ASPIRIN [Concomitant]
  8. UROCIT-K [Concomitant]

REACTIONS (2)
  - MYALGIA [None]
  - PYREXIA [None]
